FAERS Safety Report 5127915-3 (Version None)
Quarter: 2006Q4

REPORT INFORMATION
  Report Type: 
  Country: None (occurrence: None)
  Receive Date: 20061011
  Receipt Date: 20060929
  Transmission Date: 20070319
  Serious: Yes (Hospitalization, Other)
  Sender: FDA-Public Use
  Company Number: 2006AL003051

PATIENT
  Age: 91 Year

DRUGS (6)
  1. DIGOXIN [Suspect]
     Dosage: 0.125 MG; UNK; PO
     Route: 048
  2. LISINOPRIL [Concomitant]
  3. FUROSEMIDE [Concomitant]
  4. IPRATROPIUM BROMIDE [Concomitant]
  5. SALBUTAMOL [Concomitant]
  6. SERETIDE [Concomitant]

REACTIONS (1)
  - RENAL FAILURE ACUTE [None]
